FAERS Safety Report 7815445-7 (Version None)
Quarter: 2011Q4

REPORT INFORMATION
  Report Type: 
  Country: None (occurrence: None)
  Receive Date: 20111014
  Receipt Date: 20111006
  Transmission Date: 20120403
  Serious: Yes (Other)
  Sender: FDA-Public Use
  Company Number: PHEH2011US03655

PATIENT
  Age: 52 Year
  Sex: Female
  Weight: 84.807 kg

DRUGS (5)
  1. GILENYA [Suspect]
     Indication: RELAPSING-REMITTING MULTIPLE SCLEROSIS
     Dosage: 0.5 MG, QD
     Route: 048
     Dates: start: 20101222, end: 20110701
  2. EFFEXOR [Concomitant]
     Dosage: UNK UKN, UNK
  3. METHADONE HCL [Concomitant]
     Dosage: UNK UKN, UNK
  4. NORTRIPTYLINE HCL [Concomitant]
     Dosage: UNK UKN, UNK
  5. ZANAFLEX [Concomitant]
     Dosage: UNK UKN, UNK

REACTIONS (5)
  - UPPER RESPIRATORY TRACT INFECTION [None]
  - WHITE BLOOD CELL COUNT DECREASED [None]
  - CYSTITIS [None]
  - LYMPHOCYTE COUNT DECREASED [None]
  - URINARY TRACT INFECTION [None]
